FAERS Safety Report 14693624 (Version 1)
Quarter: 2018Q1

REPORT INFORMATION
  Report Type: Spontaneous
  Country: GB (occurrence: GB)
  Receive Date: 20180329
  Receipt Date: 20180329
  Transmission Date: 20180509
  Serious: Yes (Other)
  Sender: FDA-Public Use
  Company Number: GB-TEVA-2018-GB-874302

PATIENT
  Age: 68 Year
  Sex: Female
  Weight: 71.66 kg

DRUGS (2)
  1. BISOPROLOL FUMARATE. [Suspect]
     Active Substance: BISOPROLOL FUMARATE
     Dosage: 5 MILLIGRAM DAILY;
     Route: 048
  2. BISOPROLOL FUMARATE. [Suspect]
     Active Substance: BISOPROLOL FUMARATE
     Indication: PALPITATIONS
     Dosage: 2.5 MILLIGRAM DAILY;
     Route: 048

REACTIONS (6)
  - Muscular weakness [Unknown]
  - Hair growth abnormal [Unknown]
  - Myalgia [Unknown]
  - Dyspnoea [Unknown]
  - Fatigue [Unknown]
  - Tearfulness [Unknown]
